FAERS Safety Report 20979717 (Version 1)
Quarter: 2022Q2

REPORT INFORMATION
  Report Type: Spontaneous
  Country: US (occurrence: US)
  Receive Date: 20220620
  Receipt Date: 20220620
  Transmission Date: 20220721
  Serious: No
  Sender: FDA-Public Use
  Company Number: US-BRISTOL-MYERS SQUIBB COMPANY-2022-046482

PATIENT
  Age: 62 Year
  Sex: Female

DRUGS (1)
  1. ORENCIA [Suspect]
     Active Substance: ABATACEPT
     Indication: Rheumatoid arthritis
     Route: 058
     Dates: start: 20220331

REACTIONS (4)
  - Injection site bruising [Unknown]
  - Fatigue [Unknown]
  - Abdominal discomfort [Unknown]
  - Drug ineffective [Unknown]
